FAERS Safety Report 4999335-3 (Version None)
Quarter: 2006Q2

REPORT INFORMATION
  Report Type: 
  Country: None (occurrence: None)
  Receive Date: 20060511
  Receipt Date: 20060504
  Transmission Date: 20061013
  Serious: Yes (Other)
  Sender: FDA-Public Use
  Company Number: PHEH2006US05865

PATIENT
  Sex: Male

DRUGS (2)
  1. ZOMETA [Suspect]
     Indication: NEOPLASM MALIGNANT
     Dosage: 4 MG, UNK
     Dates: start: 20051201, end: 20060503
  2. AREDIA [Suspect]
     Indication: NEOPLASM MALIGNANT
     Dosage: 90 MG, UNK
     Dates: start: 20020101, end: 20051201

REACTIONS (1)
  - OSTEONECROSIS [None]
